FAERS Safety Report 9823273 (Version 1)
Quarter: 2014Q1

REPORT INFORMATION
  Report Type: Spontaneous
  Country: FR (occurrence: FR)
  Receive Date: 20140116
  Receipt Date: 20140116
  Transmission Date: 20141002
  Serious: Yes (Other)
  Sender: FDA-Public Use
  Company Number: FR-WATSON-2013-24625

PATIENT
  Age: 45 Year
  Sex: Female

DRUGS (17)
  1. VALPROIC ACID [Suspect]
     Indication: EPILEPSY
     Dosage: 2500 MG, DAILY
     Route: 048
     Dates: start: 20110913, end: 20111004
  2. BEVITINE [Concomitant]
     Indication: VITAMIN B COMPLEX DEFICIENCY
     Dosage: 250 MG, DAILY
     Route: 065
  3. DOMPERIDONE [Concomitant]
     Indication: PRODUCT USED FOR UNKNOWN INDICATION
     Dosage: 1 DF, DAILY DURING 3 DAYS
     Route: 065
     Dates: start: 20110914, end: 20110916
  4. INEXIUM                            /01479302/ [Concomitant]
     Indication: PRODUCT USED FOR UNKNOWN INDICATION
     Dosage: 40 MG, DAILY
     Route: 065
  5. SERESTA [Concomitant]
     Indication: PRODUCT USED FOR UNKNOWN INDICATION
     Dosage: 100 MG, DAILY
     Route: 065
  6. SERTRALINE [Concomitant]
     Indication: IMMUNOSUPPRESSION
     Dosage: 2 DF, DAILY
     Route: 065
  7. IXPRIM [Concomitant]
     Indication: PAIN
     Dosage: (37.5MG / 125 MG) 4 DF, DAILY DURING 3 DAYS
     Route: 065
     Dates: start: 20110914, end: 20110916
  8. STILNOX [Concomitant]
     Indication: PRODUCT USED FOR UNKNOWN INDICATION
     Dosage: 10 MG, DAILY
     Route: 065
     Dates: start: 20110913, end: 20110914
  9. ZOPICLONE [Concomitant]
     Indication: PRODUCT USED FOR UNKNOWN INDICATION
     Dosage: 7.5 MG, DAILY
     Route: 065
  10. CETIRIZINE [Concomitant]
     Indication: ASTHMA
     Dosage: 10 MG, DAILY
     Route: 065
     Dates: start: 20110924, end: 20111023
  11. GABAPENTIN [Concomitant]
     Indication: EPILEPSY
     Dosage: 600 MG, DAILY
     Route: 065
  12. IBUPROFENE [Concomitant]
     Indication: PRODUCT USED FOR UNKNOWN INDICATION
     Dosage: 1200 MG, DAILY
     Route: 065
     Dates: start: 20110919, end: 20110923
  13. NICOBION [Concomitant]
     Indication: PRODUCT USED FOR UNKNOWN INDICATION
     Dosage: 1000 MG, DAILY
     Route: 065
     Dates: start: 20110916, end: 20111011
  14. OTIPAX                             /01006301/ [Concomitant]
     Indication: EAR INFECTION
     Dosage: 12 GTT, DAILY
     Route: 050
     Dates: start: 20110919, end: 20110923
  15. PAROEX [Concomitant]
     Indication: PRODUCT USED FOR UNKNOWN INDICATION
     Dosage: 0.12% MOUTH WASH 3 TIMES/DAY
     Route: 048
     Dates: start: 20110919, end: 20110920
  16. SPIRIVA [Concomitant]
     Indication: ASTHMA
     Dosage: (18 UG) 1 DF, DAILY
     Route: 055
  17. VALIUM                             /00017001/ [Concomitant]
     Indication: PRODUCT USED FOR UNKNOWN INDICATION
     Dosage: 20 MG, DAILY
     Route: 065

REACTIONS (2)
  - Tonic convulsion [Recovered/Resolved]
  - Drug ineffective [Recovered/Resolved]
